FAERS Safety Report 5378941-0 (Version None)
Quarter: 2007Q3

REPORT INFORMATION
  Report Type: 
  Country: None (occurrence: None)
  Receive Date: 20070705
  Receipt Date: 20070622
  Transmission Date: 20080115
  Serious: Yes (Death, Life-Threatening, Hospitalization)
  Sender: FDA-Public Use
  Company Number: GB-AMGEN-US222523

PATIENT
  Sex: Male
  Weight: 77.7 kg

DRUGS (6)
  1. ENBREL [Suspect]
     Indication: RHEUMATOID ARTHRITIS
     Route: 058
     Dates: start: 20040517, end: 20070504
  2. AMOXICILLIN [Concomitant]
     Indication: BRONCHIECTASIS
     Dosage: UNKNOWN
     Route: 048
     Dates: start: 20070218, end: 20070303
  3. TIOTROPIUM BROMIDE [Concomitant]
     Indication: BRONCHIECTASIS
     Dosage: DOSE UNKNOWN, FREQUENCY DAILY
     Route: 048
  4. SERETIDE [Concomitant]
     Indication: BRONCHIECTASIS
     Dosage: DOSE UNKNOWN, FREQUENCY PRN
     Route: 048
  5. DICLOFENAC [Concomitant]
     Route: 048
     Dates: start: 20020101
  6. ACETAMINOPHEN W/ CODEINE [Concomitant]
     Dosage: DOSE UNKNOWN, FREQUENCY PRN
     Route: 048

REACTIONS (6)
  - DEPRESSED LEVEL OF CONSCIOUSNESS [None]
  - DISEASE PROGRESSION [None]
  - DUODENAL ULCER [None]
  - HAEMATEMESIS [None]
  - PLATELET COUNT DECREASED [None]
  - SEPTIC ARTHRITIS STAPHYLOCOCCAL [None]
